FAERS Safety Report 14184568 (Version 2)
Quarter: 2018Q1

REPORT INFORMATION
  Report Type: Spontaneous
  Country: JP (occurrence: JP)
  Receive Date: 20171113
  Receipt Date: 20180201
  Transmission Date: 20180508
  Serious: Yes (Other)
  Sender: FDA-Public Use
  Company Number: JP-PFIZER INC-2017485212

PATIENT
  Age: 63 Year
  Sex: Female

DRUGS (6)
  1. REBAMIPIDE [Concomitant]
     Active Substance: REBAMIPIDE
     Dosage: 1 DF, 3X/DAY
     Route: 048
     Dates: start: 20160823
  2. LOSARTAN. [Concomitant]
     Active Substance: LOSARTAN
     Indication: OEDEMA
     Dosage: UNK UNK, 1X/DAY
     Route: 048
     Dates: start: 20160524
  3. EQUMET HD [Concomitant]
     Indication: DIABETES MELLITUS
     Dosage: 1 DF, 2X/DAY
     Route: 048
     Dates: start: 20160524
  4. BISOPROLOL [Concomitant]
     Active Substance: BISOPROLOL
     Indication: HYPERTENSION
     Dosage: 1 DF, 2X/DAY
     Route: 048
     Dates: start: 20160524
  5. ZITHROMAC 250MG [Suspect]
     Active Substance: AZITHROMYCIN DIHYDRATE
     Dosage: 2 DF, 1X/DAY
     Route: 048
     Dates: start: 20171109
  6. GLIMICRON [Concomitant]
     Active Substance: GLICLAZIDE
     Indication: DIABETES MELLITUS
     Dosage: 1 DF, 2X/DAY
     Route: 048
     Dates: start: 20160524

REACTIONS (5)
  - Pollakiuria [Unknown]
  - Chromaturia [Unknown]
  - Rhabdomyolysis [Unknown]
  - Malaise [Unknown]
  - Muscular weakness [Unknown]

NARRATIVE: CASE EVENT DATE: 20171109
